FAERS Safety Report 9732078 (Version 1)
Quarter: 2013Q4

REPORT INFORMATION
  Report Type: Spontaneous
  Country: US (occurrence: US)
  Receive Date: 20131205
  Receipt Date: 20131205
  Transmission Date: 20140711
  Serious: No
  Sender: FDA-Public Use
  Company Number: US-BAYER-2013-146131

PATIENT
  Age: 32 Year
  Sex: Female

DRUGS (1)
  1. AVELOX [Suspect]
     Indication: ATYPICAL PNEUMONIA
     Dosage: ONE TABLET DAILY.
     Route: 048
     Dates: start: 20131121, end: 20131126

REACTIONS (2)
  - Joint crepitation [Not Recovered/Not Resolved]
  - Hypoaesthesia [Not Recovered/Not Resolved]
